FAERS Safety Report 18359837 (Version 1)
Quarter: 2020Q4

REPORT INFORMATION
  Report Type: Spontaneous
  Country: US (occurrence: US)
  Receive Date: 20201008
  Receipt Date: 20201008
  Transmission Date: 20210114
  Serious: No
  Sender: FDA-Public Use
  Company Number: US-LUPIN PHARMACEUTICALS INC.-2020-00187

PATIENT
  Age: 63 Year
  Sex: Female
  Weight: 65.76 kg

DRUGS (2)
  1. OMEGA 3 [DOCOSAHEXAENOIC ACID;EICOSAPENTAENOIC ACID;TOCOPHERYL ACETATE [Concomitant]
     Indication: ARTHRITIS
     Dosage: 3 DOSAGE FORM, QD
     Route: 048
  2. ESCITALOPRAM OXALATE TABLETS USP, 10 MG [Suspect]
     Active Substance: ESCITALOPRAM OXALATE
     Indication: DEPRESSION
     Dosage: UNK UNK, QD
     Route: 048
     Dates: start: 20200109, end: 20200109

REACTIONS (19)
  - Anxiety [Recovering/Resolving]
  - Dry mouth [Recovering/Resolving]
  - Asthenia [Recovering/Resolving]
  - Headache [Recovering/Resolving]
  - Thirst [Recovering/Resolving]
  - Burning sensation [Recovering/Resolving]
  - Sensation of foreign body [Recovering/Resolving]
  - Bruxism [Recovering/Resolving]
  - Arthralgia [Recovering/Resolving]
  - Insomnia [Recovering/Resolving]
  - Constipation [Recovering/Resolving]
  - Facial pain [Recovering/Resolving]
  - Yawning [Recovering/Resolving]
  - Myalgia [Recovering/Resolving]
  - Abdominal discomfort [Recovering/Resolving]
  - Joint stiffness [Recovering/Resolving]
  - Chills [Recovering/Resolving]
  - Vision blurred [Recovering/Resolving]
  - Flatulence [Recovering/Resolving]

NARRATIVE: CASE EVENT DATE: 20200109
